FAERS Safety Report 5642183-1 (Version None)
Quarter: 2008Q1

REPORT INFORMATION
  Report Type: 
  Country: None (occurrence: None)
  Receive Date: 20080131
  Receipt Date: 20070928
  Transmission Date: 20080703
  Serious: No
  Sender: FDA-Public Use
  Company Number: 163-21880-07100014

PATIENT
  Age: 66 Year
  Sex: Male

DRUGS (2)
  1. REVLIMID [Suspect]
     Indication: MULTIPLE MYELOMA
     Dosage: 15, 25 MG, QD, ORAL
     Route: 048
     Dates: start: 20070830, end: 20070901
  2. REVLIMID [Suspect]
     Indication: MULTIPLE MYELOMA
     Dosage: 15, 25 MG, QD, ORAL
     Route: 048
     Dates: start: 20070928

REACTIONS (3)
  - ARTHRALGIA [None]
  - BONE PAIN [None]
  - TREMOR [None]
